FAERS Safety Report 21739279 (Version 1)
Quarter: 2022Q4

REPORT INFORMATION
  Report Type: Spontaneous
  Country: US (occurrence: None)
  Receive Date: 20221215
  Receipt Date: 20221215
  Transmission Date: 20230112
  Serious: Yes (unspecified)
  Sender: FDA-Public Use
  Company Number: None

PATIENT
  Age: 45 Year
  Sex: Male
  Weight: 109.32 kg

DRUGS (1)
  1. PHENTERMINE HYDROCHLORIDE\TOPIRAMATE [Suspect]
     Active Substance: PHENTERMINE HYDROCHLORIDE\TOPIRAMATE
     Indication: Weight decreased
     Dosage: OTHER QUANTITY : 1 TAB;?FREQUENCY : DAILY;?
     Route: 048
     Dates: start: 20221102, end: 20221118

REACTIONS (4)
  - Vision blurred [None]
  - Eye irritation [None]
  - Ocular hyperaemia [None]
  - Angle closure glaucoma [None]

NARRATIVE: CASE EVENT DATE: 20221118
